FAERS Safety Report 9060216 (Version 1)
Quarter: 2013Q1

REPORT INFORMATION
  Report Type: Spontaneous
  Country: US (occurrence: None)
  Receive Date: 20130118
  Receipt Date: 20130118
  Transmission Date: 20140127
  Serious: Yes (Death)
  Sender: FDA-Public Use
  Company Number: AUR-APL-2013-00456

PATIENT
  Age: 48 Year
  Sex: Female

DRUGS (10)
  1. RISPERIDONE [Suspect]
  2. ONDANSETRON [Suspect]
  3. PROPRANOLOL [Suspect]
     Route: 048
  4. OXYCODONE (OXYCODONE) [Suspect]
  5. TRAZODONE [Suspect]
  6. CLONAZEPAM [Suspect]
  7. HYDROXYZINE [Suspect]
  8. TEMAZEPAM [Suspect]
  9. BENZTROPINE [Suspect]
  10. ESCITALOPRAM [Suspect]

REACTIONS (4)
  - Completed suicide [None]
  - Toxicity to various agents [None]
  - Cardiac arrest [None]
  - Respiratory arrest [None]
